FAERS Safety Report 20493711 (Version 1)
Quarter: 2022Q1

REPORT INFORMATION
  Report Type: Report from Study
  Country: PT (occurrence: PT)
  Receive Date: 20220221
  Receipt Date: 20220221
  Transmission Date: 20220423
  Serious: Yes (Other)
  Sender: FDA-Public Use
  Company Number: PT-NOVARTISPH-NVSC2022PT038426

PATIENT
  Age: 29 Year
  Sex: Female

DRUGS (1)
  1. GILENYA [Suspect]
     Active Substance: FINGOLIMOD HYDROCHLORIDE
     Indication: Multiple sclerosis
     Dosage: 0.5 MG, QD
     Route: 048
     Dates: start: 20210930

REACTIONS (5)
  - Macular oedema [Unknown]
  - Optic atrophy [Unknown]
  - Optical coherence tomography abnormal [Unknown]
  - Intraocular pressure test abnormal [Unknown]
  - Corneal thickening [Unknown]

NARRATIVE: CASE EVENT DATE: 20220120
